FAERS Safety Report 20777666 (Version 1)
Quarter: 2022Q2

REPORT INFORMATION
  Report Type: Spontaneous
  Country: US (occurrence: None)
  Receive Date: 20220502
  Receipt Date: 20220502
  Transmission Date: 20220721
  Serious: Yes (Hospitalization)
  Sender: FDA-Public Use
  Company Number: None

PATIENT
  Sex: Male
  Weight: 61.69 kg

DRUGS (24)
  1. ABIRATERONE ACETATE [Suspect]
     Active Substance: ABIRATERONE ACETATE
     Indication: Prostate cancer
     Dosage: FREQUENCY : DAILY;?
     Route: 048
     Dates: start: 202204
  2. ASPIRIN [Concomitant]
  3. BICALUTAMIDE [Concomitant]
     Active Substance: BICALUTAMIDE
  4. ENTOCORT [Concomitant]
     Active Substance: BUDESONIDE
  5. BUMEX [Concomitant]
     Active Substance: BUMETANIDE
  6. SENSIPAR [Concomitant]
     Active Substance: CINACALCET HYDROCHLORIDE
  7. CLORAZEPATE DIPOTASSIUM [Concomitant]
     Active Substance: CLORAZEPATE DIPOTASSIUM
  8. CYANOCOBALAMIN [Concomitant]
     Active Substance: CYANOCOBALAMIN
  9. KLOR-CON [Concomitant]
     Active Substance: POTASSIUM CHLORIDE
  10. LACTASE [Concomitant]
     Active Substance: LACTASE
  11. PANTOPRAZOLE [Concomitant]
     Active Substance: PANTOPRAZOLE
  12. SPIRONOLACTONE [Concomitant]
     Active Substance: SPIRONOLACTONE
  13. SUCRALFATE [Concomitant]
     Active Substance: SUCRALFATE
  14. SYNTHROID [Concomitant]
     Active Substance: LEVOTHYROXINE SODIUM
  15. TRAZODONE [Concomitant]
     Active Substance: TRAZODONE HYDROCHLORIDE
  16. AMLODIPINE [Concomitant]
     Active Substance: AMLODIPINE BESYLATE
  17. VITAMIN C [Concomitant]
     Active Substance: ASCORBIC ACID
  18. ATORVASTATIN [Concomitant]
     Active Substance: ATORVASTATIN
  19. CEFADROXIL [Concomitant]
     Active Substance: CEFADROXIL
  20. KEFLEX [Concomitant]
     Active Substance: CEPHALEXIN
  21. FLORAJEN3 [Concomitant]
  22. LISINOPRIL [Concomitant]
     Active Substance: LISINOPRIL
  23. RANEXA [Concomitant]
     Active Substance: RANOLAZINE
  24. PREDNISONE [Concomitant]
     Active Substance: PREDNISONE

REACTIONS (3)
  - Dehydration [None]
  - Asthenia [None]
  - Therapy interrupted [None]
